FAERS Safety Report 7130927-1 (Version None)
Quarter: 2010Q4

REPORT INFORMATION
  Report Type: 
  Country: None (occurrence: None)
  Receive Date: 20101201
  Receipt Date: 20101118
  Transmission Date: 20110411
  Serious: Yes (Congenital Anomaly)
  Sender: FDA-Public Use
  Company Number: A0680623A

PATIENT
  Sex: Female

DRUGS (2)
  1. PAXIL [Suspect]
     Indication: PANIC REACTION
     Dosage: 20MG PER DAY
     Dates: start: 20051031, end: 20060201
  2. PRENATAL VITAMINS [Concomitant]

REACTIONS (5)
  - ABO HAEMOLYTIC DISEASE OF NEWBORN [None]
  - CARDIAC MURMUR [None]
  - DRUG EXPOSURE DURING PREGNANCY [None]
  - HAEMORRHAGE FOETAL [None]
  - HEART DISEASE CONGENITAL [None]
